FAERS Safety Report 9225836 (Version 1)
Quarter: 2013Q1

REPORT INFORMATION
  Report Type: Spontaneous
  Country: US (occurrence: None)
  Receive Date: 20120912
  Receipt Date: 20120912
  Transmission Date: 20140127
  Serious: No
  Sender: FDA-Public Use
  Company Number: 2012SP033082

PATIENT
  Age: 70 Year
  Sex: Female

DRUGS (4)
  1. SAPHRIS 5 MG [Suspect]
     Indication: DEPRESSION
  2. SPIRIVA [Concomitant]
  3. WELCHOL [Concomitant]
  4. ARMOUR THYROID [Concomitant]

REACTIONS (6)
  - Abdominal distension [None]
  - Alopecia [None]
  - Constipation [None]
  - Somnolence [None]
  - Drug ineffective [None]
  - Inappropriate schedule of drug administration [None]
